FAERS Safety Report 7606007-5 (Version None)
Quarter: 2011Q3

REPORT INFORMATION
  Report Type: 
  Country: None (occurrence: None)
  Receive Date: 20110713
  Receipt Date: 20110629
  Transmission Date: 20111222
  Serious: Yes (Other)
  Sender: FDA-Public Use
  Company Number: PHHY2011CA55149

PATIENT

DRUGS (9)
  1. ADALAT [Concomitant]
  2. CALCIUM CHANNEL BLOCKERS [Concomitant]
  3. DIURETICS [Concomitant]
  4. ACE INHIBITOR NOS [Concomitant]
  5. ALISKIREN [Suspect]
     Dosage: 150 MG, UNK
     Dates: start: 20101110
  6. BETA BLOCKING AGENTS [Concomitant]
  7. HIDROXIZIN [Concomitant]
  8. ACETAMINOPHEN [Concomitant]
  9. LIPITOR [Concomitant]

REACTIONS (5)
  - BLOOD CHOLESTEROL DECREASED [None]
  - HIGH DENSITY LIPOPROTEIN DECREASED [None]
  - BLOOD PRESSURE SYSTOLIC INCREASED [None]
  - DEPRESSION [None]
  - LOW DENSITY LIPOPROTEIN DECREASED [None]
